FAERS Safety Report 4781955-2 (Version None)
Quarter: 2005Q3

REPORT INFORMATION
  Report Type: 
  Country: None (occurrence: None)
  Receive Date: 20050928
  Receipt Date: 20050920
  Transmission Date: 20060218
  Serious: Yes (Hospitalization)
  Sender: FDA-Public Use
  Company Number: FR-MERCK-0509FRA00059

PATIENT
  Age: 77 Year
  Sex: Female
  Weight: 54 kg

DRUGS (17)
  1. NOROXIN [Suspect]
     Indication: URINARY TRACT INFECTION
     Route: 048
     Dates: start: 20050715, end: 20050721
  2. ATENOLOL [Concomitant]
     Route: 048
     Dates: start: 20000101, end: 20050527
  3. ATENOLOL [Concomitant]
     Route: 048
     Dates: start: 20050621
  4. FLUINDIONE [Concomitant]
     Indication: ATRIAL FIBRILLATION
     Route: 048
     Dates: start: 20000101, end: 20050620
  5. FLUINDIONE [Concomitant]
     Route: 048
     Dates: start: 20050624, end: 20050629
  6. FLUINDIONE [Concomitant]
     Route: 048
     Dates: start: 20050711
  7. FUROSEMIDE [Concomitant]
     Route: 048
  8. FORMOTEROL FUMARATE [Concomitant]
     Route: 055
     Dates: end: 20050527
  9. FORMOTEROL FUMARATE [Concomitant]
     Route: 055
     Dates: start: 20050602, end: 20050706
  10. INSULIN, BIPHASIC ISOPHANE [INJECTION] [Concomitant]
     Indication: DIABETES MELLITUS
     Route: 058
  11. AMIODARONE HYDROCHLORIDE [Suspect]
     Route: 048
     Dates: start: 20050621, end: 20050706
  12. AMIODARONE HYDROCHLORIDE [Suspect]
     Route: 048
     Dates: end: 20050601
  13. BAMBUTEROL [Concomitant]
     Route: 048
     Dates: end: 20050527
  14. BAMBUTEROL [Concomitant]
     Route: 048
     Dates: start: 20050602, end: 20050620
  15. BAMBUTEROL [Concomitant]
     Route: 048
     Dates: start: 20050624
  16. BECLOMETHASONE DIPROPIONATE [Concomitant]
     Route: 055
     Dates: end: 20050527
  17. FENOTEROL HYDROBROMIDE AND IPRATROPIUM BROMIDE [Concomitant]
     Route: 055
     Dates: end: 20050527

REACTIONS (3)
  - ACUTE PULMONARY OEDEMA [None]
  - EOSINOPHILIC PNEUMONIA [None]
  - HYPOXIA [None]
